FAERS Safety Report 10682996 (Version 2)
Quarter: 2015Q1

REPORT INFORMATION
  Report Type: Spontaneous
  Country: US (occurrence: None)
  Receive Date: 20141217
  Receipt Date: 20150202
  Transmission Date: 20150720
  Serious: Yes (Hospitalization)
  Sender: FDA-Public Use
  Company Number: TPA2010A03341

PATIENT
  Age: 79 Year
  Sex: Female
  Weight: 118 kg

DRUGS (1)
  1. DEXILANT [Suspect]
     Active Substance: DEXLANSOPRAZOLE
     Indication: GASTROOESOPHAGEAL REFLUX DISEASE
     Dosage: 60 MG, 1 IN 1 D, PER ORAL
     Route: 048
     Dates: start: 20100522

REACTIONS (10)
  - Nasal congestion [None]
  - Condition aggravated [None]
  - Vulvovaginal pain [None]
  - Drug ineffective [None]
  - Oral pain [None]
  - Diarrhoea [None]
  - Dizziness [None]
  - Oropharyngeal pain [None]
  - Nausea [None]
  - Throat tightness [None]

NARRATIVE: CASE EVENT DATE: 201005
